FAERS Safety Report 6345812-2 (Version None)
Quarter: 2009Q3

REPORT INFORMATION
  Report Type: 
  Country: None (occurrence: None)
  Receive Date: 20090909
  Receipt Date: 20090828
  Transmission Date: 20100115
  Serious: Yes (Hospitalization)
  Sender: FDA-Public Use
  Company Number: GB-ELI_LILLY_AND_COMPANY-GB200909000147

PATIENT
  Age: 58 Year
  Sex: Male
  Weight: 97.2 kg

DRUGS (9)
  1. BYETTA [Suspect]
     Indication: TYPE 2 DIABETES MELLITUS
     Dosage: 10 UG, 2/D
     Route: 058
     Dates: start: 20090201, end: 20090803
  2. ASPIRIN [Concomitant]
  3. ATENOLOL [Concomitant]
  4. ATORVASTATIN [Concomitant]
  5. BEZALIP-MONO [Concomitant]
  6. BUTRANS [Concomitant]
     Route: 062
  7. DOTHIEPIN [Concomitant]
  8. LANSOPRAZOLE [Concomitant]
  9. LISINOPRIL [Concomitant]

REACTIONS (3)
  - CONVULSION [None]
  - HYPOMAGNESAEMIA [None]
  - VOMITING [None]
